FAERS Safety Report 15638685 (Version 1)
Quarter: 2018Q4

REPORT INFORMATION
  Report Type: Spontaneous
  Country: US (occurrence: US)
  Receive Date: 20181120
  Receipt Date: 20181120
  Transmission Date: 20190205
  Serious: No
  Sender: FDA-Public Use
  Company Number: US-JNJFOC-20180221924

PATIENT
  Sex: Male
  Weight: 56 kg

DRUGS (4)
  1. ECHINACEA [Concomitant]
     Active Substance: ECHINACEA, UNSPECIFIED
  2. IMBRUVICA [Suspect]
     Active Substance: IBRUTINIB
     Indication: CHRONIC LYMPHOCYTIC LEUKAEMIA
     Route: 048
     Dates: start: 20170630
  3. MULTIVITAMINS [Concomitant]
     Active Substance: VITAMINS
  4. CYANOCOBALAMIN. [Concomitant]
     Active Substance: CYANOCOBALAMIN

REACTIONS (2)
  - Irritability [Unknown]
  - Somnolence [Unknown]
